FAERS Safety Report 4918892-6 (Version None)
Quarter: 2006Q1

REPORT INFORMATION
  Report Type: 
  Country: None (occurrence: None)
  Receive Date: 20060222
  Receipt Date: 20050621
  Transmission Date: 20060701
  Serious: Yes (Hospitalization, Disabling)
  Sender: FDA-Public Use
  Company Number: US-ROCHE-408667

PATIENT
  Age: 22 Year
  Sex: Female
  Weight: 64.9 kg

DRUGS (3)
  1. ACCUTANE [Suspect]
     Route: 048
     Dates: start: 19920708, end: 19921115
  2. ACCUTANE [Suspect]
     Route: 048
     Dates: start: 20000126, end: 20000622
  3. BIRTH CONTROL PILLS [Concomitant]
     Indication: ORAL CONTRACEPTION
     Route: 048

REACTIONS (65)
  - ABDOMINAL DISTENSION [None]
  - ABDOMINAL PAIN [None]
  - ABDOMINAL PAIN LOWER [None]
  - ABDOMINAL PAIN UPPER [None]
  - ABORTION SPONTANEOUS [None]
  - ANXIETY [None]
  - BACK PAIN [None]
  - BLINDNESS [None]
  - BONE DISORDER [None]
  - BOWEL MOVEMENT IRREGULARITY [None]
  - CHRONIC FATIGUE SYNDROME [None]
  - COLITIS [None]
  - COLITIS ULCERATIVE [None]
  - CONSTIPATION [None]
  - COUGH [None]
  - DECREASED APPETITE [None]
  - DEPRESSION [None]
  - DERMATITIS [None]
  - DIARRHOEA [None]
  - DIARRHOEA HAEMORRHAGIC [None]
  - DISEASE RECURRENCE [None]
  - DRY SKIN [None]
  - EAR INFECTION [None]
  - ECZEMA [None]
  - FIBROCYSTIC BREAST DISEASE [None]
  - FIBROSIS [None]
  - FUNGAL INFECTION [None]
  - GASTRITIS [None]
  - GASTROINTESTINAL DISORDER [None]
  - GASTROOESOPHAGEAL REFLUX DISEASE [None]
  - HAEMATEMESIS [None]
  - HAEMORRHOIDS [None]
  - HEADACHE [None]
  - HYDRONEPHROSIS [None]
  - INFLAMMATORY BOWEL DISEASE [None]
  - INSOMNIA [None]
  - INTESTINAL HAEMORRHAGE [None]
  - IRRITABLE BOWEL SYNDROME [None]
  - LARGE INTESTINAL ULCER [None]
  - LIP DRY [None]
  - MELAENA [None]
  - MENORRHAGIA [None]
  - MUSCLE SPASMS [None]
  - MYALGIA [None]
  - NASAL CONGESTION [None]
  - NAUSEA [None]
  - NERVOUSNESS [None]
  - PAIN [None]
  - PERIRECTAL ABSCESS [None]
  - POLLAKIURIA [None]
  - PROCTITIS [None]
  - PRURITUS ANI [None]
  - PYREXIA [None]
  - RASH [None]
  - RECTAL HAEMORRHAGE [None]
  - RENAL DISORDER [None]
  - RETCHING [None]
  - SHOULDER PAIN [None]
  - THIRST [None]
  - UPPER RESPIRATORY TRACT INFECTION [None]
  - URGE INCONTINENCE [None]
  - URINARY TRACT INFECTION [None]
  - UTERINE PROLAPSE [None]
  - VOMITING [None]
  - WEIGHT DECREASED [None]
